FAERS Safety Report 11142891 (Version 3)
Quarter: 2015Q3

REPORT INFORMATION
  Report Type: Report from Study
  Country: DE (occurrence: DE)
  Receive Date: 20150528
  Receipt Date: 20150805
  Transmission Date: 20151125
  Serious: Yes (Death, Hospitalization)
  Sender: FDA-Public Use
  Company Number: DE-ROCHE-1584112

PATIENT
  Age: 80 Year
  Sex: Male
  Weight: 80 kg

DRUGS (5)
  1. VINCRISTIN [Concomitant]
     Active Substance: VINCRISTINE
     Route: 065
     Dates: end: 20150521
  2. CYCLOPHOSPHAMID [Suspect]
     Active Substance: CYCLOPHOSPHAMIDE
     Indication: DIFFUSE LARGE B-CELL LYMPHOMA
     Route: 042
     Dates: start: 20150409, end: 20150521
  3. DOXORUBICIN [Suspect]
     Active Substance: DOXORUBICIN
     Indication: DIFFUSE LARGE B-CELL LYMPHOMA
     Route: 042
     Dates: start: 20150409, end: 20150521
  4. RITUXIMAB [Suspect]
     Active Substance: RITUXIMAB
     Indication: DIFFUSE LARGE B-CELL LYMPHOMA
     Route: 058
     Dates: start: 20150409, end: 20150521
  5. PREDNISOLON [Concomitant]
     Active Substance: PREDNISOLONE
     Route: 065
     Dates: end: 20150521

REACTIONS (5)
  - Left ventricular dysfunction [Unknown]
  - Cerebral infarction [Fatal]
  - Pulmonary congestion [Unknown]
  - Respiratory failure [Fatal]
  - Myocardial infarction [Fatal]

NARRATIVE: CASE EVENT DATE: 20150525
